FAERS Safety Report 8556305-6 (Version None)
Quarter: 2012Q3

REPORT INFORMATION
  Report Type: 
  Country: None (occurrence: None)
  Receive Date: 20120801
  Receipt Date: 20120727
  Transmission Date: 20120928
  Serious: No
  Sender: FDA-Public Use
  Company Number: US-PFIZER INC-2012182876

PATIENT
  Sex: Female
  Weight: 45 kg

DRUGS (1)
  1. FLUCONAZOLE [Suspect]
     Indication: VULVOVAGINAL MYCOTIC INFECTION
     Dosage: 150 MG, ONCE A DAY
     Route: 048
     Dates: start: 20120725, end: 20120726

REACTIONS (7)
  - ANAL PRURITUS [None]
  - PHARYNGEAL OEDEMA [None]
  - ANORECTAL DISCOMFORT [None]
  - NASAL DISORDER [None]
  - VULVOVAGINAL PRURITUS [None]
  - OROPHARYNGEAL PAIN [None]
  - VULVOVAGINAL BURNING SENSATION [None]
